FAERS Safety Report 14183545 (Version 1)
Quarter: 2017Q4

REPORT INFORMATION
  Report Type: Spontaneous
  Country: GR (occurrence: GR)
  Receive Date: 20171113
  Receipt Date: 20171113
  Transmission Date: 20180321
  Serious: Yes (Hospitalization, Other)
  Sender: FDA-Public Use
  Company Number: GR-MYLANLABS-2017M1070679

PATIENT
  Age: 29 Year
  Sex: Male

DRUGS (4)
  1. METHYLPREDNISOLONE. [Suspect]
     Active Substance: METHYLPREDNISOLONE
     Indication: IGA NEPHROPATHY
     Dosage: 32MG/D; WAS RECEIVING FROM 10 MONTHS
     Route: 065
  2. AZATHIOPRINE. [Suspect]
     Active Substance: AZATHIOPRINE
     Indication: IGA NEPHROPATHY
     Dosage: 100 MG/D; WAS RECEIVING FROM 10 MONTHS
     Route: 065
  3. AMPHOTERICIN B, LIPOSOME [Suspect]
     Active Substance: AMPHOTERICIN B
     Indication: ANTIFUNGAL TREATMENT
     Dosage: UNK
     Route: 065
  4. CEFUROXIME. [Concomitant]
     Active Substance: CEFUROXIME
     Indication: ANTIBIOTIC THERAPY
     Route: 048

REACTIONS (3)
  - Pneumocystis jirovecii pneumonia [Recovered/Resolved]
  - Renal impairment [Unknown]
  - Bronchopulmonary aspergillosis [Recovered/Resolved]
